FAERS Safety Report 12772618 (Version 2)
Quarter: 2016Q4

REPORT INFORMATION
  Report Type: Spontaneous
  Country: US (occurrence: US)
  Receive Date: 20160922
  Receipt Date: 20161031
  Transmission Date: 20170207
  Serious: Yes (Hospitalization, Other)
  Sender: FDA-Public Use
  Company Number: US-TAKEDA-2016TUS016665

PATIENT
  Age: 50 Year
  Sex: Female

DRUGS (1)
  1. ENTYVIO [Suspect]
     Active Substance: VEDOLIZUMAB
     Indication: CROHN^S DISEASE
     Dosage: UNK
     Route: 042
     Dates: start: 201608

REACTIONS (4)
  - Sepsis [Unknown]
  - Rash papular [Not Recovered/Not Resolved]
  - Fat necrosis [Not Recovered/Not Resolved]
  - Diabetic ketoacidosis [Unknown]
